FAERS Safety Report 8579956-1 (Version None)
Quarter: 2012Q3

REPORT INFORMATION
  Report Type: 
  Country: None (occurrence: None)
  Receive Date: 20120731
  Receipt Date: 20120731
  Transmission Date: 20120928
  Serious: Yes (Other)
  Sender: FDA-Public Use
  Company Number: None

PATIENT
  Sex: Male
  Weight: 86.1834 kg

DRUGS (1)
  1. VESICARE [Suspect]

REACTIONS (8)
  - MUSCULOSKELETAL STIFFNESS [None]
  - SPEECH DISORDER [None]
  - ACTIVITIES OF DAILY LIVING IMPAIRED [None]
  - PARKINSONISM [None]
  - HALLUCINATION [None]
  - PARANOIA [None]
  - COGNITIVE DISORDER [None]
  - ABASIA [None]
